FAERS Safety Report 10706676 (Version 1)
Quarter: 2015Q1

REPORT INFORMATION
  Report Type: Spontaneous
  Country: US (occurrence: US)
  Receive Date: 20150113
  Receipt Date: 20150113
  Transmission Date: 20150721
  Serious: No
  Sender: FDA-Public Use
  Company Number: US-BAYER-2015-004772

PATIENT
  Sex: Male

DRUGS (1)
  1. ALEVE [Suspect]
     Active Substance: NAPROXEN SODIUM
     Indication: ARTHROPATHY
     Dosage: 10 DF, QD
     Route: 048

REACTIONS (3)
  - Extra dose administered [Unknown]
  - Medication error [Unknown]
  - Drug screen positive [Unknown]
